FAERS Safety Report 8115400-6 (Version None)
Quarter: 2012Q1

REPORT INFORMATION
  Report Type: 
  Country: None (occurrence: None)
  Receive Date: 20120206
  Receipt Date: 20120206
  Transmission Date: 20120608
  Serious: No
  Sender: FDA-Public Use
  Company Number: None

PATIENT
  Age: 38 Year
  Sex: Female
  Weight: 77.11 kg

DRUGS (2)
  1. CYMBALTA [Suspect]
     Indication: DEPRESSION
     Dosage: 30MG
     Route: 048
     Dates: start: 20100815, end: 20120115
  2. CYMBALTA [Suspect]
     Indication: ANXIETY
     Dosage: 30MG
     Route: 048
     Dates: start: 20100815, end: 20120115

REACTIONS (8)
  - FEAR [None]
  - BLEPHAROSPASM [None]
  - HEADACHE [None]
  - NERVOUSNESS [None]
  - IRRITABILITY [None]
  - CONFUSIONAL STATE [None]
  - TREMOR [None]
  - NIGHTMARE [None]
